FAERS Safety Report 6837487-0 (Version None)
Quarter: 2010Q3

REPORT INFORMATION
  Report Type: 
  Country: None (occurrence: None)
  Receive Date: 20100713
  Receipt Date: 20070511
  Transmission Date: 20110219
  Serious: No
  Sender: FDA-Public Use
  Company Number: US-PFIZER INC-2007040005

PATIENT
  Sex: Female
  Weight: 86.4 kg

DRUGS (7)
  1. CHANTIX [Suspect]
     Indication: SMOKING CESSATION THERAPY
     Dates: start: 20070425
  2. SEROQUEL [Suspect]
     Indication: DEPRESSION
     Dates: start: 20070101, end: 20070101
  3. CYMBALTA [Concomitant]
     Indication: DEPRESSION
  4. PROTONIX [Concomitant]
     Indication: GASTRIC ULCER
  5. TOPIRAMATE [Concomitant]
  6. ULTRAM [Concomitant]
     Indication: ARTHRITIS
  7. XANAX [Concomitant]
     Indication: ANXIETY

REACTIONS (4)
  - CONSTIPATION [None]
  - FLATULENCE [None]
  - HUNGER [None]
  - NAUSEA [None]
